FAERS Safety Report 6407103-0 (Version None)
Quarter: 2009Q4

REPORT INFORMATION
  Report Type: 
  Country: None (occurrence: None)
  Receive Date: 20091020
  Receipt Date: 20091012
  Transmission Date: 20100525
  Serious: No
  Sender: FDA-Public Use
  Company Number: US-ROXANE LABORATORIES, INC.-2009-RO-00923RO

PATIENT
  Sex: Male

DRUGS (1)
  1. CODEINE SUL TAB [Suspect]
     Indication: BACK PAIN
     Dates: start: 20090904, end: 20090908

REACTIONS (2)
  - DRUG INEFFECTIVE [None]
  - HEADACHE [None]
